FAERS Safety Report 9845404 (Version 1)
Quarter: 2014Q1

REPORT INFORMATION
  Report Type: Spontaneous
  Country: JP (occurrence: None)
  Receive Date: 20140122
  Receipt Date: 20140122
  Transmission Date: 20141002
  Serious: No
  Sender: FDA-Public Use
  Company Number: B0959408A

PATIENT
  Sex: Male

DRUGS (7)
  1. PAROXETINE HYDROCHLORIDE [Suspect]
     Indication: MAJOR DEPRESSION
     Route: 048
     Dates: end: 20131230
  2. IMIPRAMINE HYDROCHLORIDE [Concomitant]
  3. CLOMIPRAMINE HCL [Concomitant]
  4. MILNACIPRAN HYDROCHLORIDE [Concomitant]
  5. ARIPIPRAZOLE [Concomitant]
  6. OLMESARTAN MEDOXOMIL [Concomitant]
  7. ALLOPURINOL [Concomitant]

REACTIONS (2)
  - Ileus [None]
  - Blood creatine phosphokinase abnormal [None]
